FAERS Safety Report 15687228 (Version 1)
Quarter: 2018Q4

REPORT INFORMATION
  Report Type: Spontaneous
  Country: FR (occurrence: FR)
  Receive Date: 20181204
  Receipt Date: 20181204
  Transmission Date: 20190205
  Serious: Yes (Hospitalization)
  Sender: FDA-Public Use
  Company Number: FR-BAXTER-2018BAX028996

PATIENT
  Age: 53 Year
  Sex: Female
  Weight: 85 kg

DRUGS (11)
  1. METRONIDAZOLE BAXTER 0,5 POUR CENT, SOLUTION INJECTABLE EN POCHE [Suspect]
     Active Substance: METRONIDAZOLE
     Indication: PERITONITIS
     Route: 042
     Dates: start: 20180908, end: 20180909
  2. AZACTAM [Suspect]
     Active Substance: AZTREONAM
     Indication: PERITONITIS
     Dosage: POWDER AND SOLUTION FOR PARENTERAL USE
     Route: 042
     Dates: start: 20180909, end: 20180910
  3. SPASFON (PHLOROGLUCINOL\TRIMETHYLPHLOROGLUCINOL) [Concomitant]
     Active Substance: PHLOROGLUCINOL\1,3,5-TRIMETHOXYBENZENE
     Indication: PRODUCT USED FOR UNKNOWN INDICATION
     Dosage: SOLUTION FOR INJECTION IN VIAL
     Route: 042
     Dates: start: 20180908, end: 20180909
  4. OFLOXACINE [Suspect]
     Active Substance: OFLOXACIN
     Indication: PERITONITIS
     Route: 042
     Dates: start: 20180908, end: 20180909
  5. LOVENOX [Concomitant]
     Active Substance: ENOXAPARIN SODIUM
     Indication: PRODUCT USED FOR UNKNOWN INDICATION
     Route: 058
     Dates: start: 20180910, end: 20180911
  6. CETIRIZINE (DIHYDROCHLORIDE) [Concomitant]
     Indication: PRODUCT USED FOR UNKNOWN INDICATION
     Route: 048
     Dates: start: 20180909, end: 20181010
  7. PARACETAMOL [Concomitant]
     Active Substance: ACETAMINOPHEN
     Indication: PRODUCT USED FOR UNKNOWN INDICATION
     Route: 042
     Dates: start: 20180908, end: 20180909
  8. HYDROXYZINE (HYDROCHLORIDE) [Concomitant]
     Indication: PRODUCT USED FOR UNKNOWN INDICATION
     Route: 048
     Dates: start: 20180909, end: 20180910
  9. DOLIPRANE [Concomitant]
     Active Substance: ACETAMINOPHEN
     Indication: PRODUCT USED FOR UNKNOWN INDICATION
     Dosage: DOLIPRANE 500 MG, TABLET
     Route: 048
     Dates: start: 20180909, end: 20180910
  10. CLINDAMYCIN HYDROCHLORIDE. [Suspect]
     Active Substance: CLINDAMYCIN HYDROCHLORIDE
     Indication: PERITONITIS
     Route: 048
     Dates: start: 20180909, end: 20181010
  11. TYGACIL [Concomitant]
     Active Substance: TIGECYCLINE
     Indication: PRODUCT USED FOR UNKNOWN INDICATION
     Route: 042
     Dates: start: 20180910, end: 20180910

REACTIONS (1)
  - Skin reaction [Recovered/Resolved]

NARRATIVE: CASE EVENT DATE: 20180908
